FAERS Safety Report 5022285-3 (Version None)
Quarter: 2006Q2

REPORT INFORMATION
  Report Type: 
  Country: None (occurrence: None)
  Receive Date: 20060609
  Receipt Date: 20060426
  Transmission Date: 20061013
  Serious: Yes (Life-Threatening)
  Sender: FDA-Public Use
  Company Number: FR-GLAXOSMITHKLINE-B0421700A

PATIENT
  Age: 72 Year
  Sex: Female

DRUGS (6)
  1. AUGMENTIN '125' [Suspect]
     Indication: CHRONIC OBSTRUCTIVE PULMONARY DISEASE
     Dosage: 1G TWICE PER DAY
     Route: 048
     Dates: start: 20060321, end: 20060328
  2. COUMADIN [Suspect]
     Dosage: 3MG PER DAY
     Route: 048
     Dates: start: 19980615, end: 20060328
  3. OFLOCET [Suspect]
     Indication: CHRONIC OBSTRUCTIVE PULMONARY DISEASE
     Route: 048
     Dates: start: 20060327, end: 20060329
  4. DEPAKENE [Concomitant]
     Dosage: 750MG PER DAY
     Route: 048
  5. LEVOTHYROX [Concomitant]
     Dosage: 100MCG PER DAY
     Route: 065
  6. STEROGYL [Concomitant]
     Route: 065

REACTIONS (4)
  - DEHYDRATION [None]
  - DRUG INTERACTION [None]
  - INTERNATIONAL NORMALISED RATIO INCREASED [None]
  - RESPIRATORY DISORDER [None]
